FAERS Safety Report 6642825-8 (Version None)
Quarter: 2010Q1

REPORT INFORMATION
  Report Type: 
  Country: None (occurrence: None)
  Receive Date: 20100319
  Receipt Date: 20100305
  Transmission Date: 20100710
  Serious: Yes (Other)
  Sender: FDA-Public Use
  Company Number: IE-ELI_LILLY_AND_COMPANY-IE201003002336

PATIENT
  Sex: Male

DRUGS (7)
  1. CIALIS [Suspect]
     Indication: ERECTILE DYSFUNCTION
     Dosage: 20 MG, WEEKLY (1/W)
     Route: 048
     Dates: start: 20070801, end: 20100201
  2. ISTIN [Concomitant]
     Dosage: 10 MG, UNKNOWN
  3. LEVEMIR [Concomitant]
  4. NOVORAPID [Concomitant]
     Dosage: UNK, UNKNOWN
  5. RAMIPRIL [Concomitant]
     Dosage: UNK, UNKNOWN
  6. SIMVASTATIN [Concomitant]
     Dosage: UNK, UNKNOWN
  7. PROTIUM [Concomitant]
     Dosage: UNK, UNKNOWN

REACTIONS (1)
  - URINARY HESITATION [None]
